FAERS Safety Report 6636717-8 (Version None)
Quarter: 2010Q1

REPORT INFORMATION
  Report Type: 
  Country: None (occurrence: None)
  Receive Date: 20100316
  Receipt Date: 20100308
  Transmission Date: 20100710
  Serious: Yes (Hospitalization)
  Sender: FDA-Public Use
  Company Number: B0638170A

PATIENT
  Age: 69 Year
  Sex: Female

DRUGS (1)
  1. ZENTEL [Suspect]
     Dosage: 400MG UNKNOWN
     Route: 048
     Dates: start: 20091110, end: 20100109

REACTIONS (2)
  - AGRANULOCYTOSIS [None]
  - TREATMENT NONCOMPLIANCE [None]
